FAERS Safety Report 13911151 (Version 1)
Quarter: 2017Q3

REPORT INFORMATION
  Report Type: Not Available
  Country: CN (occurrence: CN)
  Receive Date: 20170828
  Receipt Date: 20170828
  Transmission Date: 20171127
  Serious: Yes (Hospitalization)
  Sender: FDA-Public Use
  Company Number: CN-ANIPHARMA-2017-CN-000061

PATIENT
  Age: 1 Day
  Sex: Male
  Weight: 3.32 kg

DRUGS (1)
  1. OXCARBAZEPINE (NON-SPECIFIC) [Suspect]
     Active Substance: OXCARBAZEPINE
     Route: 015

REACTIONS (3)
  - Exposure during pregnancy [Unknown]
  - Exposure during breast feeding [Unknown]
  - Drug withdrawal syndrome neonatal [Unknown]
